FAERS Safety Report 22525213 (Version 1)
Quarter: 2023Q2

REPORT INFORMATION
  Report Type: Spontaneous
  Country: US (occurrence: US)
  Receive Date: 20230606
  Receipt Date: 20230606
  Transmission Date: 20230722
  Serious: Yes (Other)
  Sender: FDA-Public Use
  Company Number: US-MYLANLABS-2023M1059088

PATIENT
  Age: 14 Year
  Sex: Male

DRUGS (11)
  1. TEMOZOLOMIDE [Suspect]
     Active Substance: TEMOZOLOMIDE
     Indication: Anaplastic astrocytoma
     Dosage: UNK
     Route: 065
     Dates: start: 201703
  2. VEMURAFENIB [Suspect]
     Active Substance: VEMURAFENIB
     Indication: Anaplastic astrocytoma
     Dosage: UNK
     Route: 065
     Dates: start: 201703
  3. TRAMETINIB [Suspect]
     Active Substance: TRAMETINIB
     Indication: Anaplastic astrocytoma
     Dosage: UNK
     Route: 065
  4. DOXORUBICIN [Concomitant]
     Active Substance: DOXORUBICIN
     Indication: Meningioma malignant
     Dosage: UNK
     Route: 065
  5. IFOSFAMIDE [Concomitant]
     Active Substance: IFOSFAMIDE
     Indication: Meningioma malignant
     Dosage: UNK
     Route: 065
  6. CARBOPLATIN [Concomitant]
     Active Substance: CARBOPLATIN
     Indication: Meningioma malignant
     Dosage: UNK
     Route: 065
  7. CARBOPLATIN [Concomitant]
     Active Substance: CARBOPLATIN
     Indication: Metastases to meninges
  8. ETOPOSIDE [Concomitant]
     Active Substance: ETOPOSIDE
     Indication: Meningioma malignant
     Dosage: UNK
     Route: 065
  9. CYCLOPHOSPHAMIDE [Concomitant]
     Active Substance: CYCLOPHOSPHAMIDE
     Indication: Meningioma malignant
     Dosage: UNK
     Route: 065
  10. DACTINOMYCIN [Concomitant]
     Active Substance: DACTINOMYCIN
     Indication: Meningioma malignant
     Dosage: UNK
     Route: 065
  11. VINCRISTINE [Concomitant]
     Active Substance: VINCRISTINE
     Indication: Meningioma malignant
     Dosage: UNK
     Route: 065

REACTIONS (2)
  - Drug ineffective [Unknown]
  - Disease progression [Unknown]
